FAERS Safety Report 7383531-4 (Version None)
Quarter: 2011Q1

REPORT INFORMATION
  Report Type: 
  Country: None (occurrence: None)
  Receive Date: 20110330
  Receipt Date: 20110323
  Transmission Date: 20110831
  Serious: Yes (Other)
  Sender: FDA-Public Use
  Company Number: US-ALLERGAN-1104164US

PATIENT
  Age: 47 Year
  Sex: Female
  Weight: 74.83 kg

DRUGS (4)
  1. BLINDED BOTULINUM TOXIN TYPE A - IPSEN [Suspect]
     Indication: SKIN WRINKLING
     Dosage: UNK
  2. BOTOX COSMETIC [Suspect]
     Indication: SKIN WRINKLING
     Dosage: 10 UNITS, SINGLE
     Dates: start: 20100803, end: 20100803
  3. BLINDED BOTULINUM TOXIN TYPE A - COSMETIC (9060X) [Suspect]
     Indication: SKIN WRINKLING
     Dosage: UNK
  4. DYSPORT [Suspect]
     Indication: SKIN WRINKLING
     Dosage: 30 UNITS, SINGLE
     Dates: start: 20100803, end: 20100803

REACTIONS (1)
  - BREAST CANCER STAGE I [None]
